FAERS Safety Report 8217631-3 (Version None)
Quarter: 2012Q1

REPORT INFORMATION
  Report Type: 
  Country: None (occurrence: None)
  Receive Date: 20120305
  Receipt Date: 20111011
  Transmission Date: 20120608
  Serious: No
  Sender: FDA-Public Use
  Company Number: 1000024599

PATIENT
  Age: 52 Year
  Sex: Female
  Weight: 136.5 kg

DRUGS (17)
  1. GLUCOPHAGE (METFORMIN HYDROCHLORIDE) (METFORMIN HYDROCHLORIDE) [Concomitant]
  2. SYMBICORT (BUDESONIDE, FORMOTEROL FUMARATE) (BUDESONIDE, FORMOTEROL FU [Concomitant]
  3. WARFARIN SODIUM [Concomitant]
  4. HYDRALAZINE HCL [Concomitant]
  5. ATIVAN [Concomitant]
  6. LISINOPRIL [Concomitant]
  7. WELLBUTRIN (BUPROPION HYDROCHLORIDE) (BUPROPION HYDROCHLORIDE) [Concomitant]
  8. MS CONTIN (MORPHINE SULFATE) (MORPHINE SULFATE) [Concomitant]
  9. BUMEX (BUMETANIDE) (BUMETANIDE) [Concomitant]
  10. SPIRIVA (TIOTROPIUM BROMIDE) (TIOTROPIUM BROMIDE) [Concomitant]
  11. DALIRESP [Suspect]
     Indication: PULMONARY HYPERTENSION
     Dosage: 500 MCG (500 MCG, 1 IN 1 D), ORAL
     Route: 048
     Dates: start: 20110601
  12. NOVOLOG (INSULIN ASPART) (INJECTION) (INSULIN ASPART) [Concomitant]
  13. ZANTAC [Concomitant]
  14. CELEBREX [Concomitant]
  15. LANTUS (INSULIN GLARGINE) (INJECTION) (INSULIN GLARGINE) [Concomitant]
  16. ELAVIL (AMITRIPTYLINE) (AMITRIPTYLINE) [Concomitant]
  17. PAXIL [Concomitant]

REACTIONS (3)
  - BLOOD GLUCOSE DECREASED [None]
  - WEIGHT DECREASED [None]
  - OFF LABEL USE [None]
